FAERS Safety Report 25412619 (Version 1)
Quarter: 2025Q2

REPORT INFORMATION
  Report Type: Spontaneous
  Country: JP (occurrence: JP)
  Receive Date: 20250609
  Receipt Date: 20250609
  Transmission Date: 20250717
  Serious: Yes (Other)
  Sender: AMGEN
  Company Number: JP-KYOWAKIRIN-2025KK010519

PATIENT
  Sex: Male

DRUGS (2)
  1. PEGFILGRASTIM [Suspect]
     Active Substance: PEGFILGRASTIM
     Indication: Product used for unknown indication
     Route: 058
  2. CABAZITAXEL [Concomitant]
     Active Substance: CABAZITAXEL
     Indication: Prostate cancer
     Route: 065

REACTIONS (2)
  - Delirium [Unknown]
  - Disorientation [Unknown]
